FAERS Safety Report 7470376-X (Version None)
Quarter: 2011Q2

REPORT INFORMATION
  Report Type: 
  Country: None (occurrence: None)
  Receive Date: 20110510
  Receipt Date: 20110211
  Transmission Date: 20111010
  Serious: Yes (Hospitalization)
  Sender: FDA-Public Use
  Company Number: FR-BAYER-201039645GPV

PATIENT
  Age: 66 Year
  Sex: Female
  Weight: 74 kg

DRUGS (6)
  1. NEXAVAR [Suspect]
     Indication: THYROID CANCER
     Dosage: 1 TABLET IN MORNING AND 2 TABLETS IN EVENING
     Route: 048
     Dates: start: 20100818, end: 20100913
  2. LEVOTHYROXINE SODIUM [Concomitant]
     Indication: THYROIDECTOMY
     Dosage: 150 ?G (DAILY DOSE), QD, ORAL
     Route: 048
     Dates: start: 19891201
  3. XANAX [Concomitant]
  4. EXFORGE [Concomitant]
     Indication: HYPERTENSION
     Dosage: 10 MG, QD
     Route: 048
     Dates: start: 20100802
  5. IMODIUM [Concomitant]
  6. NEXIUM [Concomitant]
     Indication: DYSPEPSIA
     Dosage: 40 MG (DAILY DOSE), QD, ORAL
     Route: 048
     Dates: start: 20100720

REACTIONS (4)
  - VISION BLURRED [None]
  - DYSARTHRIA [None]
  - METAMORPHOPSIA [None]
  - CEREBROVASCULAR ACCIDENT [None]
